FAERS Safety Report 5726568-0 (Version None)
Quarter: 2008Q2

REPORT INFORMATION
  Report Type: 
  Country: None (occurrence: None)
  Receive Date: 20080502
  Receipt Date: 20080422
  Transmission Date: 20081010
  Serious: No
  Sender: FDA-Public Use
  Company Number: BR-ROCHE-560592

PATIENT
  Sex: Male

DRUGS (3)
  1. ROACUTAN [Suspect]
     Indication: ACNE
     Dates: start: 20050601, end: 20060101
  2. DIANE 35 [Concomitant]
     Indication: CONTRACEPTION
  3. DIANE 35 [Concomitant]

REACTIONS (2)
  - NO ADVERSE EVENT [None]
  - NORMAL NEWBORN [None]
